FAERS Safety Report 4547971-0 (Version None)
Quarter: 2004Q4

REPORT INFORMATION
  Report Type: 
  Country: None (occurrence: None)
  Receive Date: 20041227
  Receipt Date: 20041022
  Transmission Date: 20050328
  Serious: No
  Sender: FDA-Public Use
  Company Number: 04P-163-0278313-00

PATIENT
  Age: 64 Year
  Sex: Female
  Weight: 104.3273 kg

DRUGS (8)
  1. HUMIRA [Suspect]
     Indication: RHEUMATOID ARTHRITIS
     Dosage: 40 MG, 1 IN 2 WK, SUBCUTANEOUS
     Route: 058
     Dates: start: 20040801
  2. NOVALIN 70/30 INSULIN [Concomitant]
  3. METOPROLOL SUCCINATE [Concomitant]
  4. CELECOXIB [Concomitant]
  5. PAROXETINE HYDROCHLORIDE [Concomitant]
  6. LANSOPRAZOLE [Concomitant]
  7. MULTIVIT [Concomitant]
  8. ACETYLSALICYLIC ACID SRT [Concomitant]

REACTIONS (1)
  - INJECTION SITE PAIN [None]
